FAERS Safety Report 9760241 (Version 1)
Quarter: 2013Q4

REPORT INFORMATION
  Report Type: Spontaneous
  Country: US (occurrence: US)
  Receive Date: 20131216
  Receipt Date: 20131216
  Transmission Date: 20140711
  Serious: No
  Sender: FDA-Public Use
  Company Number: US-GILEAD-2010-0028339

PATIENT
  Sex: 0

DRUGS (7)
  1. LETAIRIS [Suspect]
     Indication: PULMONARY ARTERIAL HYPERTENSION
  2. ADCIRCA [Suspect]
  3. DIGOXIN [Suspect]
  4. PLAQUENIL [Suspect]
  5. WARFARIN [Suspect]
  6. FAMTIDINE [Suspect]
  7. LASIX [Suspect]

REACTIONS (1)
  - Unevaluable event [Unknown]
